FAERS Safety Report 7427693-9 (Version None)
Quarter: 2011Q2

REPORT INFORMATION
  Report Type: 
  Country: None (occurrence: None)
  Receive Date: 20110421
  Receipt Date: 20110413
  Transmission Date: 20111010
  Serious: Yes (Other)
  Sender: FDA-Public Use
  Company Number: US-ASTRAZENECA-2009UW03706

PATIENT
  Age: 9987 Day
  Sex: Female
  Weight: 72.6 kg

DRUGS (14)
  1. TOPAMAX [Concomitant]
     Indication: ANXIETY DISORDER
  2. VYTORIN [Concomitant]
     Dates: start: 20060726
  3. SEROQUEL [Suspect]
     Indication: INSOMNIA
     Dosage: 20 MG, 40 MG
     Route: 048
     Dates: start: 20050722, end: 20060208
  4. WELLBUTRIN XL/BUPROPION SR [Concomitant]
     Indication: DEPRESSION
     Dosage: 150 MG, 300 MG DISPENSED
     Dates: start: 20050723
  5. CELEXA [Concomitant]
     Indication: DEPRESSION
     Dates: start: 19990101
  6. CLONAZEPAM [Concomitant]
     Indication: ANXIETY DISORDER
  7. CELEXA [Concomitant]
     Dates: start: 20040930
  8. INDOMETHACIN [Concomitant]
     Dosage: 25 MG ML
     Dates: start: 20041001
  9. CITALOPRAM HYDROBROMIDE [Concomitant]
     Dates: start: 20050129
  10. SEROQUEL [Suspect]
     Indication: SLEEP DISORDER
     Dosage: 20 MG, 40 MG
     Route: 048
     Dates: start: 20050722, end: 20060208
  11. SEROQUEL [Suspect]
     Route: 048
     Dates: start: 20050723
  12. SEROQUEL [Suspect]
     Route: 048
     Dates: start: 20050723
  13. ATENOLOL [Concomitant]
     Dates: start: 20040930
  14. ADVAIR HFA [Concomitant]
     Indication: CHEST PAIN

REACTIONS (3)
  - TYPE 2 DIABETES MELLITUS [None]
  - WEIGHT INCREASED [None]
  - DRUG EXPOSURE DURING PREGNANCY [None]
